FAERS Safety Report 8845939 (Version 3)
Quarter: 2013Q1

REPORT INFORMATION
  Report Type: Spontaneous
  Country: BR (occurrence: BR)
  Receive Date: 20121017
  Receipt Date: 20130314
  Transmission Date: 20140127
  Serious: Yes (Hospitalization, Disabling)
  Sender: FDA-Public Use
  Company Number: BR-ASTRAZENECA-2012SE77184

PATIENT
  Age: 941 Month
  Sex: Female

DRUGS (6)
  1. CRESTOR [Suspect]
     Indication: BLOOD CHOLESTEROL INCREASED
     Route: 048
     Dates: start: 2012
  2. GALVUS [Concomitant]
     Route: 048
  3. LABIRIN [Concomitant]
     Route: 048
  4. INSULIN [Concomitant]
     Route: 048
  5. ABLOK [Concomitant]
     Route: 048
  6. UNSPECIFIED MEDICATION [Concomitant]
     Indication: DEPRESSION
     Route: 048

REACTIONS (8)
  - Diverticulitis [Recovering/Resolving]
  - Fall [Unknown]
  - Lumbar vertebral fracture [Not Recovered/Not Resolved]
  - Diarrhoea [Not Recovered/Not Resolved]
  - Swelling [Not Recovered/Not Resolved]
  - Decreased appetite [Recovered/Resolved]
  - Abdominal distension [Unknown]
  - Nausea [Not Recovered/Not Resolved]
